FAERS Safety Report 19034094 (Version 4)
Quarter: 2021Q3

REPORT INFORMATION
  Report Type: Spontaneous
  Country: FR (occurrence: FR)
  Receive Date: 20210319
  Receipt Date: 20210825
  Transmission Date: 20211014
  Serious: Yes (Other)
  Sender: FDA-Public Use
  Company Number: FR-MYLANLABS-2021M1015171

PATIENT
  Age: 62 Year
  Sex: Female

DRUGS (14)
  1. FLUCONAZOLE. [Suspect]
     Active Substance: FLUCONAZOLE
     Indication: SEPSIS
     Dosage: 400 MILLIGRAM, QD
     Route: 041
     Dates: start: 20201022, end: 20201028
  2. TAZOBACTAM [Suspect]
     Active Substance: TAZOBACTAM
     Indication: SEPSIS
     Dosage: UNK, 4G/500MG 2/DAY
     Route: 041
     Dates: start: 20200926, end: 20201022
  3. OCTREOTIDE. [Suspect]
     Active Substance: OCTREOTIDE
     Indication: FISTULA
     Dosage: 600 MICROGRAM, QD
     Route: 041
     Dates: start: 20200924
  4. VANCOMYCIN [Suspect]
     Active Substance: VANCOMYCIN
     Indication: INFECTION
     Dosage: 2 GRAM, QD
     Route: 041
     Dates: start: 20200926, end: 20201006
  5. MEROPENEM. [Suspect]
     Active Substance: MEROPENEM
     Indication: SEPSIS
     Dosage: UNK
     Route: 041
     Dates: start: 20201006, end: 20201020
  6. TAZOCILLINE [Suspect]
     Active Substance: PIPERACILLIN SODIUM\TAZOBACTAM SODIUM
     Indication: PRODUCT USED FOR UNKNOWN INDICATION
     Dosage: UNK
     Route: 048
     Dates: start: 20200926
  7. OCTREOTIDE. [Suspect]
     Active Substance: OCTREOTIDE
     Indication: FISTULA
     Dosage: UNK
     Route: 048
     Dates: start: 20200924
  8. LINEZOLID. [Suspect]
     Active Substance: LINEZOLID
     Indication: SEPSIS
     Dosage: 1200 MILLIGRAM, QD
     Route: 041
     Dates: start: 20201022, end: 20201027
  9. PANTOPRAZOLE [Suspect]
     Active Substance: PANTOPRAZOLE
     Dosage: UNK
     Route: 048
     Dates: start: 20200924
  10. MYCAMINE [Suspect]
     Active Substance: MICAFUNGIN SODIUM
     Indication: CANDIDA SEPSIS
     Dosage: 100 MILLIGRAM, QD
     Route: 041
     Dates: start: 20201006, end: 20201022
  11. MOTILIUM [Suspect]
     Active Substance: DOMPERIDONE
     Indication: NAUSEA
     Dosage: UNK, PRN, IF NECESSARY
     Route: 048
     Dates: start: 20201022
  12. PIPERACILLINE                      /00502401/ [Suspect]
     Active Substance: PIPERACILLIN
     Indication: SEPSIS
     Dosage: 4G/500MG 2/DAY
     Route: 041
     Dates: start: 20200926, end: 20201022
  13. PANTOPRAZOLE [Suspect]
     Active Substance: PANTOPRAZOLE
     Indication: PRODUCT USED FOR UNKNOWN INDICATION
     Dosage: 40 MILLIGRAM, QD
     Route: 048
     Dates: start: 20200924, end: 20201025
  14. ONDANSETRON [Suspect]
     Active Substance: ONDANSETRON
     Indication: NAUSEA
     Dosage: 12 MILLIGRAM, QD
     Route: 041
     Dates: start: 20201022, end: 20201103

REACTIONS (2)
  - Dermatitis exfoliative generalised [Not Recovered/Not Resolved]
  - Rash morbilliform [Not Recovered/Not Resolved]

NARRATIVE: CASE EVENT DATE: 20201025
